FAERS Safety Report 10664459 (Version 1)
Quarter: 2014Q4

REPORT INFORMATION
  Report Type: Spontaneous
  Country: PE (occurrence: PE)
  Receive Date: 20141219
  Receipt Date: 20141219
  Transmission Date: 20150529
  Serious: Yes (Other)
  Sender: FDA-Public Use
  Company Number: PE-PFIZER INC-2014346591

PATIENT
  Age: 81 Year
  Sex: Female

DRUGS (1)
  1. DETRUSITOL SR [Suspect]
     Active Substance: TOLTERODINE TARTRATE
     Dosage: UNK

REACTIONS (8)
  - Musculoskeletal disorder [Unknown]
  - Arthralgia [Not Recovered/Not Resolved]
  - Muscle disorder [Unknown]
  - Osteoporosis [Unknown]
  - Pollakiuria [Unknown]
  - Constipation [Unknown]
  - Hypokinesia [Recovering/Resolving]
  - Fall [Recovering/Resolving]
